FAERS Safety Report 11942771 (Version 1)
Quarter: 2016Q1

REPORT INFORMATION
  Report Type: Spontaneous
  Country: US (occurrence: US)
  Receive Date: 20160125
  Receipt Date: 20160125
  Transmission Date: 20160526
  Serious: No
  Sender: FDA-Public Use
  Company Number: US-UNITED THERAPEUTICS-UNT-2015-008895

PATIENT
  Sex: Female
  Weight: 104.31 kg

DRUGS (5)
  1. REMODULIN [Suspect]
     Active Substance: TREPROSTINIL
     Indication: PULMONARY ARTERIAL HYPERTENSION
     Dosage: 0.02 ?G/KG/MIN, CONTINUING
     Route: 058
     Dates: start: 20150715
  2. OPSUMIT [Concomitant]
     Active Substance: MACITENTAN
     Indication: PRODUCT USED FOR UNKNOWN INDICATION
  3. ADCIRCA [Concomitant]
     Active Substance: TADALAFIL
     Indication: PRODUCT USED FOR UNKNOWN INDICATION
  4. REMODULIN [Suspect]
     Active Substance: TREPROSTINIL
     Dosage: 0.024 ?G/KG/MIN, CONTINUING
     Route: 058
  5. TYVASO [Suspect]
     Active Substance: TREPROSTINIL
     Indication: PRODUCT USED FOR UNKNOWN INDICATION
     Dosage: 18-54 MICROGRAMS, QID
     Dates: start: 20120620

REACTIONS (10)
  - Infusion site oedema [Unknown]
  - Nausea [Unknown]
  - Pulmonary arterial pressure increased [Not Recovered/Not Resolved]
  - Infusion site pain [Unknown]
  - Decreased appetite [Unknown]
  - Drug dose omission [Unknown]
  - Infusion site erythema [Unknown]
  - Fatigue [Unknown]
  - Device dislocation [Unknown]
  - Pyrexia [Unknown]

NARRATIVE: CASE EVENT DATE: 2015
